FAERS Safety Report 6184574-9 (Version None)
Quarter: 2009Q2

REPORT INFORMATION
  Report Type: 
  Country: None (occurrence: None)
  Receive Date: 20090508
  Receipt Date: 20090429
  Transmission Date: 20091009
  Serious: Yes (Hospitalization, Other)
  Sender: FDA-Public Use
  Company Number: US-MERCK-0803USA01470

PATIENT
  Age: 72 Year
  Sex: Female
  Weight: 46 kg

DRUGS (2)
  1. FOSAMAX [Suspect]
     Indication: OSTEOPOROSIS
     Route: 048
  2. FOSAMAX [Suspect]
     Route: 048
     Dates: start: 19981029, end: 20071101

REACTIONS (60)
  - ABDOMINAL PAIN UPPER [None]
  - ACANTHOSIS [None]
  - ANGIOPATHY [None]
  - ANXIETY [None]
  - CANDIDIASIS [None]
  - CAROTID ARTERIOSCLEROSIS [None]
  - CATARACT [None]
  - CHRONIC OBSTRUCTIVE PULMONARY DISEASE [None]
  - CORONARY ARTERY DISEASE [None]
  - COUGH [None]
  - DRUG HYPERSENSITIVITY [None]
  - DYSPNOEA [None]
  - ENCEPHALOPATHY [None]
  - ERYTHROPLASIA [None]
  - FALL [None]
  - FUNGAL INFECTION [None]
  - GALLBLADDER DISORDER [None]
  - GASTRITIS [None]
  - HEAD AND NECK CANCER [None]
  - HYPERCHOLESTEROLAEMIA [None]
  - HYPERKERATOSIS [None]
  - HYPERLIPIDAEMIA [None]
  - HYPERTENSION [None]
  - HYPOTHYROIDISM [None]
  - IMPAIRED HEALING [None]
  - INCREASED TENDENCY TO BRUISE [None]
  - INFLAMMATION [None]
  - INSOMNIA [None]
  - LABYRINTHITIS [None]
  - LETHARGY [None]
  - LICHEN SCLEROSUS [None]
  - LUNG NEOPLASM [None]
  - LYMPHADENOPATHY [None]
  - MACULAR DEGENERATION [None]
  - METASTASES TO LUNG [None]
  - METASTASES TO LYMPH NODES [None]
  - MUCOSAL ULCERATION [None]
  - NASAL NEOPLASM [None]
  - NODULE [None]
  - NUTRITIONAL SUPPORT [None]
  - OPEN WOUND [None]
  - ORAL CAVITY FISTULA [None]
  - ORAL DISORDER [None]
  - ORAL INFECTION [None]
  - OSTEOMYELITIS [None]
  - OSTEONECROSIS [None]
  - PAIN [None]
  - PARAESTHESIA [None]
  - PLEURAL EFFUSION [None]
  - RESORPTION BONE INCREASED [None]
  - RHINITIS ALLERGIC [None]
  - ROTATOR CUFF SYNDROME [None]
  - SNORING [None]
  - SQUAMOUS CELL CARCINOMA [None]
  - STOMATITIS [None]
  - TOBACCO ABUSE [None]
  - TOOTH EXTRACTION [None]
  - TRANSIENT ISCHAEMIC ATTACK [None]
  - VERTIGO [None]
  - WEIGHT DECREASED [None]
